FAERS Safety Report 25000789 (Version 5)
Quarter: 2025Q3

REPORT INFORMATION
  Report Type: Spontaneous
  Country: US (occurrence: US)
  Receive Date: 20250222
  Receipt Date: 20250707
  Transmission Date: 20251021
  Serious: Yes (Death, Other)
  Sender: SANOFI AVENTIS
  Company Number: US-SA-2025SA050063

PATIENT
  Age: 61 Year
  Sex: Female

DRUGS (22)
  1. REZUROCK [Suspect]
     Active Substance: BELUMOSUDIL
     Indication: Graft versus host disease
     Dosage: 200 MG, QD
     Route: 048
     Dates: start: 20240927
  2. ACYCLOVIR [Concomitant]
     Active Substance: ACYCLOVIR
     Dosage: 1 DF, BID
     Route: 048
  3. ATOVAQUONE [Concomitant]
     Active Substance: ATOVAQUONE
     Dosage: 10 ML, QD
     Route: 048
  4. BIOTIN [Concomitant]
     Active Substance: BIOTIN
     Dosage: 1 DF, QD
     Route: 048
  5. CLOBETASOL [Concomitant]
     Active Substance: CLOBETASOL
     Indication: Graft versus host disease oral
     Dosage: UNK, BID (COAT INSIDE OF MOUTH-BUCCAL MUCOSA AND GUMS AND LET SET FOR 2 MINUTES TWICE DAILY. SPIT OU
     Route: 061
  6. DESONIDE [Concomitant]
     Active Substance: DESONIDE
     Indication: Rash
     Dosage: UNK UNK, BID
     Route: 061
  7. FLUOCINONIDE [Concomitant]
     Active Substance: FLUOCINONIDE
     Dosage: UNK, Q6H (APPLY TO AFFECTED AREA EVERY 6-6 HOURS AS NEEDED TO COVER A LARGE BODY SURFACE AREA)
  8. LEVOFLOXACIN [Concomitant]
     Active Substance: LEVOFLOXACIN
     Dosage: 1 DF, QD (1 TAB BY MOUTH DAILY AS NEEDED WHEN ANC LESS HAN 500 (LEVAQUIN))
     Route: 048
  9. LEVOTHYROXINE [Concomitant]
     Active Substance: LEVOTHYROXINE
     Dosage: 1 DF, QD
     Route: 048
  10. LOTEMAX [Concomitant]
     Active Substance: LOTEPREDNOL ETABONATE
     Dosage: 1 DROP, BID (INSTILL 1 DROP INTO BOTH EYES TWICE A DAY)
  11. METOPROLOL [Concomitant]
     Active Substance: METOPROLOL
  12. VITAMINS [Concomitant]
     Active Substance: VITAMINS
     Dosage: 1 DF, QD
     Route: 048
  13. OMEGA-3 ACIDS [Concomitant]
     Active Substance: OMEGA-3 FATTY ACIDS
     Dosage: 1 DF, QD
     Route: 048
  14. POSACONAZOLE [Concomitant]
     Active Substance: POSACONAZOLE
     Dosage: 3 DF, QD (TAKE 3 TABLETS BY MOUTH DAILY WITH LARGE MEAL (NOXAFIL))
     Route: 048
  15. POTASSIUM CHLORIDE [Concomitant]
     Active Substance: POTASSIUM CHLORIDE
     Dosage: 1 DF, TID
     Route: 048
  16. PREDNISONE [Concomitant]
     Active Substance: PREDNISONE
     Dosage: 1 DF, QD (TAPERING)
  17. REFRESH PLUS [Concomitant]
     Active Substance: CARBOXYMETHYLCELLULOSE SODIUM
     Dosage: UNK UNK, TID (1-2 DROPS TO EACH EYE TID)
  18. RESTASIS [Concomitant]
     Active Substance: CYCLOSPORINE
     Dosage: 1 DROP, BID (INSTILL 1 DROP IN EACH EYE EVERY MORNING AND EVRY NIGHT)
  19. VITAMIN D3 [Concomitant]
     Active Substance: CHOLECALCIFEROL
     Dosage: 1 DF, QD
  20. GABAPENTIN [Concomitant]
     Active Substance: GABAPENTIN
     Indication: Hip surgery
     Dosage: 200 MG, QD (TAKING 200 MG BY MOUTH ONCE A DAY, TAPERING DOWN POST HIP SURGERY)
     Route: 048
  21. PEPCID [Concomitant]
     Active Substance: FAMOTIDINE
     Dosage: 1 DF, QD
  22. SODIUM CHLORIDE [Concomitant]
     Active Substance: SODIUM CHLORIDE

REACTIONS (2)
  - Sepsis [Fatal]
  - Muscular weakness [Not Recovered/Not Resolved]

NARRATIVE: CASE EVENT DATE: 20250623
